FAERS Safety Report 11184679 (Version 10)
Quarter: 2016Q4

REPORT INFORMATION
  Report Type: Spontaneous
  Country: US (occurrence: US)
  Receive Date: 20150528
  Receipt Date: 20161221
  Transmission Date: 20170206
  Serious: Yes (Congenital Anomaly, Other)
  Sender: FDA-Public Use
  Company Number: PHEH2015US023669

PATIENT
  Sex: Female

DRUGS (4)
  1. ZOFRAN [Suspect]
     Active Substance: ONDANSETRON HYDROCHLORIDE
     Indication: FOETAL EXPOSURE DURING PREGNANCY
     Dosage: MOTHER DOSE: 04 MG, Q6H
     Route: 064
  2. ZOFRAN ODT [Suspect]
     Active Substance: ONDANSETRON HYDROCHLORIDE
     Indication: FOETAL EXPOSURE DURING PREGNANCY
     Dosage: MOTHER DOSE: 08 MG, Q4H
     Route: 064
  3. ONDANSETRON HYDROCHLORIDE. [Suspect]
     Active Substance: ONDANSETRON HYDROCHLORIDE
     Indication: FOETAL EXPOSURE DURING PREGNANCY
     Dosage: MOTHER DOSE: 08 MG AS NEEDED (PRN)
     Route: 064
  4. ONDANSETRON HYDROCHLORIDE. [Suspect]
     Active Substance: ONDANSETRON HYDROCHLORIDE
     Indication: FOETAL EXPOSURE DURING PREGNANCY
     Dosage: MOTHER DOSE: 04 MG ONCE DAILY (QD)
     Route: 064

REACTIONS (47)
  - Adrenogenital syndrome [Unknown]
  - Neonatal tachypnoea [Unknown]
  - Failure to thrive [Unknown]
  - Congenital heart valve disorder [Unknown]
  - Cystic fibrosis [Unknown]
  - Pain [Unknown]
  - Somnolence [Unknown]
  - Pyrexia [Unknown]
  - Atrial septal defect [Recovered/Resolved]
  - Neonatal respiratory distress syndrome [Unknown]
  - Emotional distress [Unknown]
  - Otitis media acute [Unknown]
  - Upper respiratory tract infection [Unknown]
  - Conjunctivitis [Unknown]
  - Dermatitis diaper [Unknown]
  - Diarrhoea [Unknown]
  - Heart disease congenital [Unknown]
  - Patent ductus arteriosus [Recovered/Resolved]
  - Pulmonary valve incompetence [Unknown]
  - Gastroenteritis [Unknown]
  - Galactosaemia [Unknown]
  - Anhedonia [Unknown]
  - Deformity [Unknown]
  - Gastrooesophageal reflux disease [Unknown]
  - Cough [Unknown]
  - Decreased appetite [Unknown]
  - Bronchitis [Unknown]
  - Injury [Unknown]
  - Anxiety [Unknown]
  - Congenital anomaly [Unknown]
  - Left-to-right cardiac shunt [Unknown]
  - Ventricular hypertrophy [Unknown]
  - Pulmonary oedema [Unknown]
  - Foetal exposure during pregnancy [Unknown]
  - Congenital hypothyroidism [Unknown]
  - Leukocytosis [Unknown]
  - Heart rate irregular [Unknown]
  - Pulmonary valve stenosis congenital [Recovered/Resolved]
  - Respiratory syncytial virus bronchiolitis [Unknown]
  - Ataxia [Unknown]
  - Cardiac murmur [Unknown]
  - Vomiting [Unknown]
  - Urinary tract infection [Unknown]
  - Pleural effusion [Recovered/Resolved]
  - Cardiomegaly [Unknown]
  - Abnormal loss of weight [Unknown]
  - Fatigue [Unknown]
